FAERS Safety Report 6840850-5 (Version None)
Quarter: 2010Q3

REPORT INFORMATION
  Report Type: 
  Country: None (occurrence: None)
  Receive Date: 20100714
  Receipt Date: 20070615
  Transmission Date: 20110219
  Serious: No
  Sender: FDA-Public Use
  Company Number: US-PFIZER INC-2007051512

PATIENT
  Sex: Male
  Weight: 61.2 kg

DRUGS (12)
  1. CHANTIX [Suspect]
     Indication: SMOKING CESSATION THERAPY
     Dates: start: 20070201
  2. CARDURA [Concomitant]
  3. PROSCAR [Concomitant]
  4. ZOCOR [Concomitant]
  5. METOPROLOL [Concomitant]
  6. KLONOPIN [Concomitant]
  7. SERTRALINE HCL [Concomitant]
  8. ACIPHEX [Concomitant]
  9. ASPIRIN [Concomitant]
  10. TAMSULOSIN HYDROCHLORIDE [Concomitant]
  11. MULTIVITAMIN [Concomitant]
  12. STRESSTABS [Concomitant]

REACTIONS (2)
  - DECREASED APPETITE [None]
  - NAUSEA [None]
